FAERS Safety Report 7691326-7 (Version None)
Quarter: 2011Q3

REPORT INFORMATION
  Report Type: 
  Country: None (occurrence: None)
  Receive Date: 20110818
  Receipt Date: 20110808
  Transmission Date: 20111222
  Serious: Yes (Hospitalization)
  Sender: FDA-Public Use
  Company Number: US-NOVOPROD-333314

PATIENT
  Age: 38 Year
  Sex: Female
  Weight: 92.971 kg

DRUGS (1)
  1. NOVOLOG [Suspect]
     Indication: TYPE 1 DIABETES MELLITUS
     Dosage: 50-70 U
     Route: 058

REACTIONS (2)
  - CHEST PAIN [None]
  - BLOOD GLUCOSE INCREASED [None]
